FAERS Safety Report 21392764 (Version 1)
Quarter: 2022Q3

REPORT INFORMATION
  Report Type: Spontaneous
  Country: US (occurrence: US)
  Receive Date: 20220929
  Receipt Date: 20220929
  Transmission Date: 20221027
  Serious: No
  Sender: FDA-Public Use
  Company Number: US-SA-2022SA394359

PATIENT
  Age: 13 Year
  Sex: Female

DRUGS (1)
  1. CAPRELSA [Suspect]
     Active Substance: VANDETANIB
     Indication: Thyroid cancer
     Dosage: 150 MG, QD
     Route: 048
     Dates: start: 20191224

REACTIONS (1)
  - Ingrowing nail [Unknown]
